FAERS Safety Report 5736873-X (Version None)
Quarter: 2008Q2

REPORT INFORMATION
  Report Type: 
  Country: None (occurrence: None)
  Receive Date: 20080509
  Receipt Date: 20080228
  Transmission Date: 20081010
  Serious: No
  Sender: FDA-Public Use
  Company Number: ADE# 08-028

PATIENT
  Age: 65 Year
  Sex: Female
  Weight: 65.7716 kg

DRUGS (4)
  1. CLONAZEPAM [Suspect]
     Indication: ANXIETY
     Dosage: 0.5MG, 3XDAILY
     Dates: start: 20070608, end: 20070901
  2. LEXAPRO [Concomitant]
  3. NORVASC [Concomitant]
  4. ACIPHEX [Concomitant]

REACTIONS (13)
  - ANOREXIA [None]
  - DIZZINESS [None]
  - DRY EYE [None]
  - FATIGUE [None]
  - GASTRIC DISORDER [None]
  - HEADACHE [None]
  - HYPERHIDROSIS [None]
  - HYPERSENSITIVITY [None]
  - NASAL DRYNESS [None]
  - PHARMACEUTICAL PRODUCT COMPLAINT [None]
  - PRURITUS [None]
  - RHINORRHOEA [None]
  - SOMNOLENCE [None]
